FAERS Safety Report 4492896-2 (Version None)
Quarter: 2004Q4

REPORT INFORMATION
  Report Type: 
  Country: None (occurrence: None)
  Receive Date: 20041102
  Receipt Date: 20040927
  Transmission Date: 20050328
  Serious: No
  Sender: FDA-Public Use
  Company Number: A01200404822

PATIENT
  Age: 38 Year
  Sex: Female

DRUGS (2)
  1. DANAZOL [Suspect]
     Dosage: 100 MG TID, ORAL
     Route: 048
     Dates: start: 20040818
  2. ACETAMINOPHEN+CODEIN) [Suspect]
     Dosage: ORAL
     Route: 048
     Dates: start: 20040831

REACTIONS (3)
  - ABORTION SPONTANEOUS [None]
  - DRUG EXPOSURE DURING PREGNANCY [None]
  - PREGNANCY [None]
